FAERS Safety Report 14562499 (Version 1)
Quarter: 2018Q1

REPORT INFORMATION
  Report Type: Other
  Country: FR (occurrence: FR)
  Receive Date: 20180222
  Receipt Date: 20180222
  Transmission Date: 20180509
  Serious: Yes (Hospitalization, Other)
  Sender: FDA-Public Use
  Company Number: FR-ASPEN-GLO2018FR001330

PATIENT
  Age: 17 Year
  Sex: Male

DRUGS (1)
  1. LANVIS [Suspect]
     Active Substance: THIOGUANINE ANHYDROUS
     Indication: CROHN^S DISEASE
     Dosage: 20 MG, QD
     Route: 048
     Dates: start: 201708, end: 20171101

REACTIONS (2)
  - Pancreatitis [Recovering/Resolving]
  - Off label use [Unknown]

NARRATIVE: CASE EVENT DATE: 201708
